FAERS Safety Report 10715885 (Version 1)
Quarter: 2015Q1

REPORT INFORMATION
  Report Type: Report from Study
  Country: US (occurrence: None)
  Receive Date: 20150109
  Receipt Date: 20150109
  Transmission Date: 20150721
  Serious: Yes (Death, Hospitalization)
  Sender: FDA-Public Use
  Company Number: 2014PROUSA03644

PATIENT
  Age: 74 Year
  Sex: Male
  Weight: 84.8 kg

DRUGS (13)
  1. ASPIRIN (ACETYLSALICYLIC ACID) [Concomitant]
     Active Substance: ASPIRIN
  2. CALCIUM (CALCIUM CARBONATE) [Concomitant]
  3. CHONDROITIN SULFATE (BOVINE)\GLUCOSAMINE SULFATE [Concomitant]
     Active Substance: CHONDROITIN SULFATE (BOVINE)\GLUCOSAMINE SULFATE
  4. OMEGA 3 (FISH OIL) [Concomitant]
     Active Substance: OMEGA-3 FATTY ACIDS
  5. TERAPEUTIC RADIOPHARMACEUTICALS [Concomitant]
  6. COD LIVER OIL (COD-LIVER OIL) [Concomitant]
  7. CASODEX [Concomitant]
     Active Substance: BICALUTAMIDE
  8. DIOVAN [Concomitant]
     Active Substance: VALSARTAN
  9. KETOROLAC [Concomitant]
     Active Substance: KETOROLAC\KETOROLAC TROMETHAMINE
  10. PROVENGE [Suspect]
     Active Substance: SIPULEUCEL-T
     Indication: PROSTATE CANCER METASTATIC
     Dosage: SINGLE
     Route: 042
     Dates: start: 20130318, end: 20130318
  11. XGEVA [Concomitant]
     Active Substance: DENOSUMAB
  12. ABIRATERONE [Concomitant]
     Active Substance: ABIRATERONE
  13. FLAXSEED [Concomitant]
     Active Substance: FLAX SEED

REACTIONS (1)
  - Aneurysm [None]

NARRATIVE: CASE EVENT DATE: 20140116
